FAERS Safety Report 8959870 (Version 1)
Quarter: 2012Q4

REPORT INFORMATION
  Report Type: 
  Country: US (occurrence: US)
  Receive Date: 20121212
  Receipt Date: 20121212
  Transmission Date: 20130627
  Serious: Yes (Other)
  Sender: FDA-Public Use
  Company Number: US-JNJFOC-20121014258

PATIENT
  Sex: Female
  Weight: 56.7 kg

DRUGS (6)
  1. REMICADE [Suspect]
     Indication: COLITIS ULCERATIVE
     Route: 042
     Dates: start: 201111
  2. BACTRIM [Suspect]
     Indication: FOLLICULITIS
     Route: 048
  3. ASACOL HD [Concomitant]
     Indication: NEOPLASM PROPHYLAXIS
     Route: 048
     Dates: start: 201209
  4. FOLIC ACID [Concomitant]
     Indication: NEOPLASM PROPHYLAXIS
     Route: 048
     Dates: start: 201209
  5. RISAQUAD [Concomitant]
     Indication: PROBIOTIC THERAPY
     Route: 048
     Dates: start: 201209
  6. ALL OTHER THERAPEUTIC PRODUCT [Concomitant]
     Indication: MEDICAL DIET
     Dosage: 2 tablets once a day
     Route: 048
     Dates: start: 201209

REACTIONS (3)
  - Seborrhoeic dermatitis [Recovering/Resolving]
  - Presyncope [Unknown]
  - Folliculitis [Recovering/Resolving]
